FAERS Safety Report 8074857-X (Version None)
Quarter: 2012Q1

REPORT INFORMATION
  Report Type: 
  Country: None (occurrence: None)
  Receive Date: 20120126
  Receipt Date: 20120123
  Transmission Date: 20120608
  Serious: Yes (Death)
  Sender: FDA-Public Use
  Company Number: US-ASTRAZENECA-2012SE04575

PATIENT
  Sex: Female

DRUGS (4)
  1. SEROQUEL [Suspect]
     Indication: DEMENTIA
     Route: 048
  2. SEROQUEL [Suspect]
     Indication: INSOMNIA
     Route: 048
  3. SEROQUEL [Suspect]
     Indication: AGGRESSION
     Route: 048
  4. SEROQUEL [Suspect]
     Indication: HALLUCINATION
     Route: 048

REACTIONS (2)
  - OFF LABEL USE [None]
  - DEATH [None]
